FAERS Safety Report 18938653 (Version 3)
Quarter: 2021Q1

REPORT INFORMATION
  Report Type: Spontaneous
  Country: CN (occurrence: CN)
  Receive Date: 20210224
  Receipt Date: 20210301
  Transmission Date: 20210420
  Serious: Yes (Life-Threatening)
  Sender: FDA-Public Use
  Company Number: CN-CELGENEUS-CHN-20210205864

PATIENT
  Age: 52 Year
  Sex: Male

DRUGS (12)
  1. PLATELETS [Concomitant]
     Active Substance: HUMAN PLATELET, ALLOGENIC
     Indication: PRODUCT USED FOR UNKNOWN INDICATION
     Route: 065
     Dates: start: 20210217
  2. AZACITIDINE. [Suspect]
     Active Substance: AZACITIDINE
     Indication: ACUTE MYELOID LEUKAEMIA
     Dosage: 135 MILLIGRAM
     Route: 058
     Dates: start: 20210204, end: 20210210
  3. HOMOHARRINGTONINE [Suspect]
     Active Substance: OMACETAXINE MEPESUCCINATE
     Indication: ACUTE MYELOID LEUKAEMIA
     Dosage: 3 MILLIGRAM
     Route: 041
     Dates: start: 20210204, end: 20210210
  4. STERILE WATER [Concomitant]
     Active Substance: WATER
     Indication: ACUTE MYELOID LEUKAEMIA
     Dosage: 5.4 MILLIGRAM
     Route: 058
     Dates: start: 20210204, end: 20210210
  5. ETOPOSIDE. [Suspect]
     Active Substance: ETOPOSIDE
     Indication: ACUTE MYELOID LEUKAEMIA
     Dosage: .05 GRAM
     Route: 041
     Dates: start: 20210205, end: 20210209
  6. RHG?CSF [Concomitant]
     Indication: WHITE BLOOD CELL COUNT DECREASED
     Route: 065
     Dates: start: 20210206
  7. RED BLOOD CELLS [Concomitant]
     Active Substance: HUMAN RED BLOOD CELL
     Route: 065
     Dates: start: 20210216
  8. RED BLOOD CELLS [Concomitant]
     Active Substance: HUMAN RED BLOOD CELL
     Indication: PRODUCT USED FOR UNKNOWN INDICATION
     Route: 065
     Dates: start: 20210210
  9. SODIUM CHLORIDE. [Concomitant]
     Active Substance: SODIUM CHLORIDE
     Dosage: 250 MILLIGRAM
     Route: 041
     Dates: start: 20210205, end: 20210209
  10. CYTARABINE. [Suspect]
     Active Substance: CYTARABINE
     Indication: ACUTE MYELOID LEUKAEMIA
     Dosage: 150 MILLIGRAM
     Route: 041
     Dates: start: 20210204, end: 20210210
  11. SODIUM CHLORIDE. [Concomitant]
     Active Substance: SODIUM CHLORIDE
     Indication: ACUTE MYELOID LEUKAEMIA
     Dosage: 500 MILLIGRAM
     Route: 041
     Dates: start: 20210204, end: 20210210
  12. RED BLOOD CELLS [Concomitant]
     Active Substance: HUMAN RED BLOOD CELL
     Route: 065
     Dates: start: 20210213

REACTIONS (1)
  - Myelosuppression [Recovering/Resolving]

NARRATIVE: CASE EVENT DATE: 20210212
